FAERS Safety Report 7811406-2 (Version None)
Quarter: 2011Q4

REPORT INFORMATION
  Report Type: 
  Country: None (occurrence: None)
  Receive Date: 20111013
  Receipt Date: 20111005
  Transmission Date: 20120403
  Serious: Yes (Congenital Anomaly, Other)
  Sender: FDA-Public Use
  Company Number: DE-BRISTOL-MYERS SQUIBB COMPANY-16137127

PATIENT
  Sex: Female
  Weight: 2 kg

DRUGS (7)
  1. FOLIO [Concomitant]
     Dosage: PARENT ROUTE OF ADMINISTRATION: ORAL.
     Route: 064
  2. NUVARING [Concomitant]
  3. COUMADIN [Suspect]
     Dosage: DAILY DOSE 37.5 MG/WK, PARENT ROUTE OF ADMINISTRATION:ORAL.
     Route: 064
  4. DEXAMETHASONE [Concomitant]
     Dosage: PARENT ROUTE OF ADMINISTRATION:IM.
     Route: 064
     Dates: start: 20090221, end: 20090222
  5. HEPARIN SODIUM [Suspect]
     Dosage: PARENT ROUTE OF ADMINISTRATION: SUBCUTANEOUS.
     Route: 064
     Dates: start: 20080828, end: 20081010
  6. ATOSIBAN [Concomitant]
     Dosage: PARENT ROUTE OF ADMINISTRATION:IV.
     Route: 064
  7. CEFUROXIME [Concomitant]
     Dosage: PARENT ROUTE OF ADMINISTRATION:IV.
     Route: 064

REACTIONS (6)
  - RESPIRATORY DISTRESS [None]
  - HYPOGLYCAEMIA [None]
  - PATENT DUCTUS ARTERIOSUS [None]
  - ATRIAL SEPTAL DEFECT [None]
  - HAEMANGIOMA [None]
  - PREMATURE BABY [None]
